FAERS Safety Report 6163368-4 (Version None)
Quarter: 2009Q2

REPORT INFORMATION
  Report Type: 
  Country: None (occurrence: None)
  Receive Date: 20090422
  Receipt Date: 20090420
  Transmission Date: 20091009
  Serious: No
  Sender: FDA-Public Use
  Company Number: US-B.I. PHARMACEUTICALS,INC./RIDGEFIELD-2009-BP-03886BP

PATIENT
  Age: 55 Year
  Sex: Male

DRUGS (2)
  1. SPIRIVA [Suspect]
     Dosage: 18MCG
     Route: 055
     Dates: start: 20090319
  2. ALBUTEROL [Concomitant]

REACTIONS (1)
  - DRUG INEFFECTIVE [None]
